FAERS Safety Report 23460083 (Version 1)
Quarter: 2024Q1

REPORT INFORMATION
  Report Type: Other
  Country: KZ (occurrence: KZ)
  Receive Date: 20240131
  Receipt Date: 20240131
  Transmission Date: 20240410
  Serious: Yes (Other)
  Sender: FDA-Public Use
  Company Number: KZ-MACLEODS PHARMA EU LTD-MAC2024045536

PATIENT

DRUGS (2)
  1. PYRAZINAMIDE [Suspect]
     Active Substance: PYRAZINAMIDE
     Indication: Pulmonary tuberculosis
     Dosage: UNK (J04AK01)
     Route: 065
  2. Gluconyl [Concomitant]
     Indication: Product used for unknown indication
     Dosage: UNK (ABDI IBRAHIM GLOBAL PHARM)
     Route: 065

REACTIONS (1)
  - Hepatitis toxic [Recovering/Resolving]
